FAERS Safety Report 19681822 (Version 2)
Quarter: 2021Q3

REPORT INFORMATION
  Report Type: Report from Study
  Country: FR (occurrence: FR)
  Receive Date: 20210810
  Receipt Date: 20210813
  Transmission Date: 20211014
  Serious: Yes (Hospitalization)
  Sender: FDA-Public Use
  Company Number: FR-ROCHE-2883191

PATIENT
  Age: 59 Year
  Sex: Male
  Weight: 77.4 kg

DRUGS (7)
  1. MOVICOL [Concomitant]
     Active Substance: POLYETHYLENE GLYCOL 3350\POTASSIUM CHLORIDE\SODIUM BICARBONATE\SODIUM CHLORIDE
     Indication: CONSTIPATION
     Dosage: 1 U
     Route: 048
     Dates: start: 20210722
  2. ATEZOLIZUMAB. [Suspect]
     Active Substance: ATEZOLIZUMAB
     Indication: NON-SMALL CELL LUNG CANCER METASTATIC
     Dosage: ON 09/JUN/2021, MOST RECENT DOSE OF STUDY DRUG?PRIOR TO AE
     Route: 041
     Dates: start: 20210512
  3. SOLUPRED (FRANCE) [Concomitant]
     Active Substance: PREDNISOLONE SODIUM METAZOATE
     Route: 048
     Dates: start: 20210625, end: 20210709
  4. SKENAN [Concomitant]
     Active Substance: MORPHINE SULFATE
     Route: 048
     Dates: start: 20210722
  5. SKENAN [Concomitant]
     Active Substance: MORPHINE SULFATE
     Indication: MUSCULOSKELETAL CHEST PAIN
     Route: 048
     Dates: start: 20210701, end: 20210721
  6. PARACETAMOL [Concomitant]
     Active Substance: ACETAMINOPHEN
     Indication: MUSCLE CONTRACTURE
     Route: 048
     Dates: start: 20210430
  7. IPATASERTIB. [Suspect]
     Active Substance: IPATASERTIB
     Indication: NON-SMALL CELL LUNG CANCER METASTATIC
     Dosage: ON 09/JUN/2021, MOST RECENT DOSE OF IPATASERTIB 400 MG?PRIOR TO AE
     Route: 048
     Dates: start: 20210512

REACTIONS (1)
  - Hypoxia [Recovering/Resolving]

NARRATIVE: CASE EVENT DATE: 20210802
